FAERS Safety Report 22533149 (Version 1)
Quarter: 2023Q2

REPORT INFORMATION
  Report Type: Spontaneous
  Country: GB (occurrence: None)
  Receive Date: 20230607
  Receipt Date: 20230607
  Transmission Date: 20230722
  Serious: Yes (Other)
  Sender: FDA-Public Use
  Company Number: 2023A131491

PATIENT
  Sex: Male

DRUGS (3)
  1. GEFITINIB [Suspect]
     Active Substance: GEFITINIB
     Indication: Malignant neoplasm progression
     Route: 048
     Dates: start: 201903, end: 202011
  2. TAGRISSO [Concomitant]
     Active Substance: OSIMERTINIB
     Route: 048
  3. TAGRISSO [Concomitant]
     Active Substance: OSIMERTINIB
     Route: 048

REACTIONS (4)
  - Metastases to central nervous system [Unknown]
  - Malignant neoplasm progression [Unknown]
  - Lung disorder [Unknown]
  - Off label use [Unknown]
